FAERS Safety Report 18303894 (Version 1)
Quarter: 2020Q3

REPORT INFORMATION
  Report Type: Spontaneous
  Country: CA (occurrence: CA)
  Receive Date: 20200924
  Receipt Date: 20200924
  Transmission Date: 20201103
  Serious: Yes (Other)
  Sender: FDA-Public Use
  Company Number: CA-SA-2020SA257468

PATIENT

DRUGS (11)
  1. CODEINE [Suspect]
     Active Substance: CODEINE
  2. PREDNISONE. [Concomitant]
     Active Substance: PREDNISONE
     Dosage: 40 MG (TAPER FORM 0 MG) IN 2 MONTHS
     Dates: start: 202009
  3. FOLIC ACID. [Concomitant]
     Active Substance: FOLIC ACID
     Dosage: UNK
  4. ROSUVASTATIN. [Concomitant]
     Active Substance: ROSUVASTATIN
     Dosage: UNK
  5. TRANDOLAPRIL. [Concomitant]
     Active Substance: TRANDOLAPRIL
     Dosage: UNK
  6. ASA [Concomitant]
     Active Substance: ASPIRIN
     Dosage: UNK
  7. BISOPROLOL [Concomitant]
     Active Substance: BISOPROLOL
     Dosage: UNK
  8. METHOTREXATE. [Suspect]
     Active Substance: METHOTREXATE
     Dosage: 25 MG, QW
     Route: 058
     Dates: start: 202001
  9. CORTISONE [Concomitant]
     Active Substance: CORTISONE
     Dosage: UNK
  10. ZOPLICONE [Concomitant]
     Active Substance: ZOPICLONE
     Dosage: UNK
  11. LEFLUNOMIDE. [Suspect]
     Active Substance: LEFLUNOMIDE
     Dosage: UNK
     Dates: start: 201811, end: 202008

REACTIONS (7)
  - Drug ineffective [Unknown]
  - Off label use [Unknown]
  - Pain [Unknown]
  - Hypersensitivity [Unknown]
  - Joint stiffness [Unknown]
  - Joint swelling [Unknown]
  - Rheumatoid arthritis [Unknown]

NARRATIVE: CASE EVENT DATE: 202008
